FAERS Safety Report 13728018 (Version 2)
Quarter: 2019Q1

REPORT INFORMATION
  Report Type: Spontaneous
  Country: US (occurrence: US)
  Receive Date: 20170707
  Receipt Date: 20190306
  Transmission Date: 20190417
  Serious: No
  Sender: FDA-Public Use
  Company Number: US-PFIZER INC-2017293839

PATIENT
  Age: 12 Year
  Sex: Male
  Weight: 41 kg

DRUGS (5)
  1. GENOTROPIN [Suspect]
     Active Substance: SOMATROPIN
     Dosage: 2.6 MG, 1X/DAY(6 DAYS A WEEK)
     Route: 058
     Dates: start: 201602
  2. GENOTROPIN [Suspect]
     Active Substance: SOMATROPIN
     Dosage: DOSE LOWERED
     Dates: start: 201706
  3. GENOTROPIN [Suspect]
     Active Substance: SOMATROPIN
     Indication: GROWTH HORMONE DEFICIENCY
     Dosage: 1.6 MG, DAILY
     Route: 058
     Dates: start: 201208
  4. GENOTROPIN [Suspect]
     Active Substance: SOMATROPIN
     Dosage: 2 MG, DAILY
     Dates: start: 20120921
  5. SEROQUEL [Concomitant]
     Active Substance: QUETIAPINE FUMARATE
     Dosage: UNK UNK, 1X/DAY, (AT NIGHT)
     Route: 048

REACTIONS (5)
  - Headache [Recovered/Resolved]
  - Pain in extremity [Unknown]
  - Product use issue [Unknown]
  - Drug level above therapeutic [Unknown]
  - Product dose omission [Unknown]
